FAERS Safety Report 7607529-3 (Version None)
Quarter: 2011Q3

REPORT INFORMATION
  Report Type: 
  Country: None (occurrence: None)
  Receive Date: 20110713
  Receipt Date: 20110713
  Transmission Date: 20111222
  Serious: Yes (Hospitalization)
  Sender: FDA-Public Use
  Company Number: US-GILEAD-2011-0041172

PATIENT
  Sex: Female

DRUGS (1)
  1. CAYSTON [Suspect]
     Indication: CYSTIC FIBROSIS
     Route: 055
     Dates: start: 20110501

REACTIONS (2)
  - INFECTIVE PULMONARY EXACERBATION OF CYSTIC FIBROSIS [None]
  - HAEMOPTYSIS [None]
